FAERS Safety Report 15275698 (Version 2)
Quarter: 2019Q2

REPORT INFORMATION
  Report Type: Spontaneous
  Country: US (occurrence: US)
  Receive Date: 20180814
  Receipt Date: 20190517
  Transmission Date: 20190711
  Serious: No
  Sender: FDA-Public Use
  Company Number: US-CELLTRION INC.-2018US020380

PATIENT

DRUGS (9)
  1. ALLOPURINOL. [Concomitant]
     Active Substance: ALLOPURINOL
     Indication: GOUT
     Dosage: 300MG TABLET ONCE DAILY (STARTED THIS ABOUT 2 YEARS AGO)
  2. GLIPIZIDE. [Concomitant]
     Active Substance: GLIPIZIDE
     Indication: DIABETES MELLITUS
     Dosage: 10MG TABLET, 1 TABLET TWICE DAILY (STARTED ABOUT 3 YEARS AGO)
  3. INFLECTRA [Suspect]
     Active Substance: INFLIXIMAB-DYYB
     Indication: PSORIATIC ARTHROPATHY
     Dosage: EVERY 6 WEEKS
     Route: 042
     Dates: start: 2017
  4. ASPIRIN                            /00002701/ [Concomitant]
     Active Substance: ASPIRIN
     Dosage: 81 MG, ONCE DAILY (STARTED THIS ABOUT 10 YEARS AGO AFTER HAVING A STROKE)
  5. ENALAPRIL [Concomitant]
     Active Substance: ENALAPRIL
     Indication: HYPERTENSION
     Dosage: 20 MG, 1 TABLET TWICE DAILY (STARTED THIS ABOUT 6 YEARS AGO)
  6. INFLECTRA [Suspect]
     Active Substance: INFLIXIMAB-DYYB
     Dosage: UNK
     Route: 065
     Dates: start: 20180424, end: 20180424
  7. METOPROLOL. [Concomitant]
     Active Substance: METOPROLOL
     Indication: HYPERTENSION
     Dosage: 200 MG, 1 TABLET TWICE DAILY (STARTED IT ABOUT 1 YEAR AGO)
  8. METFORMIN [Concomitant]
     Active Substance: METFORMIN HYDROCHLORIDE
     Indication: DIABETES MELLITUS
     Dosage: 1,000MG TABLET, 1 TABLET TWICE DAILY (STARTED THIS ABOUT 7 YEARS AGO)
  9. PREDNISONE. [Concomitant]
     Active Substance: PREDNISONE
     Indication: GOUT
     Dosage: 10MG ONCE DAILY (STARTED AT THE SAME TIME AS THE INFLECTRA. STOPPED IT ABOUT 5-7 WEEKS AGO)

REACTIONS (4)
  - Product prescribing issue [Unknown]
  - No adverse event [Not Recovered/Not Resolved]
  - No adverse event [Unknown]
  - Weight decreased [Unknown]
